FAERS Safety Report 10141154 (Version 2)
Quarter: 2014Q2

REPORT INFORMATION
  Report Type: Spontaneous
  Country: US (occurrence: US)
  Receive Date: 20140429
  Receipt Date: 20140617
  Transmission Date: 20141212
  Serious: No
  Sender: FDA-Public Use
  Company Number: US-009507513-1404USA015016

PATIENT
  Sex: Female

DRUGS (2)
  1. CLARITIN REDITABS 12HR [Suspect]
     Indication: SEASONAL ALLERGY
     Dosage: 5 MG, QD
     Route: 048
     Dates: start: 20140410
  2. CLARITIN REDITABS 12HR [Suspect]
     Dosage: 5 MG, QD
     Route: 048
     Dates: start: 20140410

REACTIONS (2)
  - Underdose [Unknown]
  - Drug ineffective [Unknown]
